FAERS Safety Report 6611686-5 (Version None)
Quarter: 2010Q1

REPORT INFORMATION
  Report Type: 
  Country: None (occurrence: None)
  Receive Date: 20100303
  Receipt Date: 20100222
  Transmission Date: 20100710
  Serious: Yes (Hospitalization)
  Sender: FDA-Public Use
  Company Number: JP-JNJFOC-20100300195

PATIENT
  Age: 62 Year
  Sex: Female

DRUGS (3)
  1. CRAVIT [Suspect]
     Indication: ENTEROCOLITIS
     Route: 048
  2. LAC-B [Concomitant]
     Route: 065
  3. DIASTASE [Concomitant]
     Route: 065

REACTIONS (3)
  - LEUKOPENIA [None]
  - NEPHROGENIC ANAEMIA [None]
  - NEPHROPATHY [None]
